FAERS Safety Report 4452655-3 (Version None)
Quarter: 2004Q3

REPORT INFORMATION
  Report Type: 
  Country: None (occurrence: None)
  Receive Date: 20040813
  Receipt Date: 20040602
  Transmission Date: 20050211
  Serious: No
  Sender: FDA-Public Use
  Company Number: S04-USA-03787-01

PATIENT
  Age: 83 Year
  Sex: Female

DRUGS (4)
  1. NAMENDA [Suspect]
     Indication: DEMENTIA ALZHEIMER'S TYPE
     Dosage: 5 MG QD PO
     Route: 048
     Dates: start: 20040523, end: 20040529
  2. NAMENDA [Suspect]
     Indication: PARKINSON'S DISEASE
     Dosage: 5 MG QD PO
     Route: 048
     Dates: start: 20040523, end: 20040529
  3. NAMENDA [Suspect]
     Indication: DEMENTIA ALZHEIMER'S TYPE
     Dosage: 10 MG QD PO
     Route: 048
     Dates: start: 20040530
  4. NAMENDA [Suspect]
     Indication: PARKINSON'S DISEASE
     Dosage: 10 MG QD PO
     Route: 048
     Dates: start: 20040530

REACTIONS (3)
  - AGITATION [None]
  - CONFUSIONAL STATE [None]
  - GAIT DISTURBANCE [None]
